FAERS Safety Report 12337043 (Version 2)
Quarter: 2016Q2

REPORT INFORMATION
  Report Type: Spontaneous
  Country: US (occurrence: US)
  Receive Date: 20160505
  Receipt Date: 20160510
  Transmission Date: 20160815
  Serious: No
  Sender: FDA-Public Use
  Company Number: US-MISSION PHARMACAL COMPANY-1051484

PATIENT
  Age: 42 Year
  Sex: Female

DRUGS (1)
  1. THIOLA [Suspect]
     Active Substance: TIOPRONIN
     Indication: CYSTINURIA
     Route: 065
     Dates: start: 20160410

REACTIONS (5)
  - Hypogeusia [Recovered/Resolved]
  - Pain [Unknown]
  - Stomatitis [Recovering/Resolving]
  - Nausea [Unknown]
  - Rash [Unknown]
